FAERS Safety Report 8854982 (Version 1)
Quarter: 2012Q4

REPORT INFORMATION
  Report Type: 
  Country: US (occurrence: US)
  Receive Date: 20121023
  Receipt Date: 20121023
  Transmission Date: 20130627
  Serious: Yes (Other)
  Sender: FDA-Public Use
  Company Number: US-PFIZER INC-2012262474

PATIENT
  Age: 57 Year
  Sex: Female
  Weight: 100 kg

DRUGS (12)
  1. NEURONTIN [Suspect]
     Indication: NERVE INJURY
     Dosage: 100 mg, 3x/day
     Dates: start: 1998
  2. NEURONTIN [Suspect]
     Dosage: UNK
  3. METFORMIN HCL [Suspect]
     Indication: DIABETES MELLITUS
     Dosage: 250 mg, 2x/day
     Dates: start: 2003
  4. LYRICA [Concomitant]
     Indication: NERVE INJURY
     Dosage: 300 mg, daily
  5. LYRICA [Concomitant]
     Indication: NEURALGIA
  6. LEVOTHYROXINE [Concomitant]
     Indication: HYPOTHYROIDISM
     Dosage: 150 ug, daily
  7. METOPROLOL [Concomitant]
     Dosage: 25 mg, 2x/day
  8. LISINOPRIL/ HYDROCHLOROTHIAZIDE [Concomitant]
     Dosage: 25/12.5 mg, daily
  9. OMEPRAZOLE [Concomitant]
     Dosage: 20 mg, daily
  10. PRAVASTATIN [Concomitant]
     Dosage: 80 mg, daily
  11. SERTRALINE [Concomitant]
     Dosage: 100 mg, daily
  12. OXYCONTIN [Concomitant]
     Dosage: 20 mg, 2x/day

REACTIONS (3)
  - Drug ineffective [Unknown]
  - Weight decreased [Recovered/Resolved]
  - Weight increased [Unknown]
